FAERS Safety Report 10962079 (Version 1)
Quarter: 2015Q1

REPORT INFORMATION
  Report Type: Spontaneous
  Country: US (occurrence: US)
  Receive Date: 20150327
  Receipt Date: 20150327
  Transmission Date: 20150721
  Serious: No
  Sender: FDA-Public Use
  Company Number: US-PFIZER INC-2015095671

PATIENT
  Age: 81 Year
  Sex: Female
  Weight: 47 kg

DRUGS (6)
  1. NORPACE [Suspect]
     Active Substance: DISOPYRAMIDE PHOSPHATE
     Indication: HEART RATE IRREGULAR
     Dosage: 150 MG, EVERY 12 HOURS
  2. ELIQUIS [Concomitant]
     Active Substance: APIXABAN
  3. NORPACE [Suspect]
     Active Substance: DISOPYRAMIDE PHOSPHATE
     Indication: CARDIOMYOPATHY
     Dosage: 100 MG, 2X/DAY FOR 2 WEEKS
     Route: 048
     Dates: start: 20150306, end: 20150309
  4. TOPROL XL [Concomitant]
     Active Substance: METOPROLOL SUCCINATE
  5. NORPACE [Suspect]
     Active Substance: DISOPYRAMIDE PHOSPHATE
     Indication: CARDIOMYOPATHY
     Dosage: 100 MG, EVERY 6 HOURS
  6. NORPACE [Suspect]
     Active Substance: DISOPYRAMIDE PHOSPHATE
     Indication: HEART RATE IRREGULAR
     Dosage: UNK, 4X/DAY
     Route: 048

REACTIONS (4)
  - Dizziness [Recovering/Resolving]
  - Dyspnoea [Recovering/Resolving]
  - Nausea [Recovering/Resolving]
  - Heart rate irregular [Unknown]

NARRATIVE: CASE EVENT DATE: 20140306
